FAERS Safety Report 4880109-9 (Version None)
Quarter: 2005Q4

REPORT INFORMATION
  Report Type: 
  Country: None (occurrence: None)
  Receive Date: 20051223
  Receipt Date: 20050922
  Transmission Date: 20060501
  Serious: Yes (Hospitalization)
  Sender: FDA-Public Use
  Company Number: 05P-163-0311723-00

PATIENT
  Age: 70 Year
  Sex: Female
  Weight: 72.5755 kg

DRUGS (11)
  1. HUMIRA [Suspect]
     Indication: RHEUMATOID ARTHRITIS
     Dosage: 40 MG, 1 IN 1 WK, SUBCUTANEOUS
     Route: 058
     Dates: start: 20040101, end: 20050907
  2. METHOTREXATE [Concomitant]
  3. FOLIC ACID [Concomitant]
  4. ENALAPRIL [Concomitant]
  5. ESTROGENS CONJUGATED [Concomitant]
  6. BUMETANIDE [Concomitant]
  7. ACYCLOVIR [Concomitant]
  8. MULTIVITAMIN [Concomitant]
  9. CALCIUM GLUCONATE [Concomitant]
  10. DESIPRAMINE HCL [Concomitant]
  11. LOVASTATIN [Concomitant]

REACTIONS (2)
  - PAIN [None]
  - PAIN IN EXTREMITY [None]
